FAERS Safety Report 6237754-8 (Version None)
Quarter: 2009Q2

REPORT INFORMATION
  Report Type: 
  Country: None (occurrence: None)
  Receive Date: 20090618
  Receipt Date: 20090608
  Transmission Date: 20091009
  Serious: Yes (Disabling)
  Sender: FDA-Public Use
  Company Number: 294048

PATIENT
  Sex: Female

DRUGS (1)
  1. MARCAINE [Suspect]
     Indication: ANALGESIA
     Dosage: CONTINUOUS, INJECTION
     Dates: start: 20040513

REACTIONS (3)
  - INJURY [None]
  - JOINT RANGE OF MOTION DECREASED [None]
  - MUSCULOSKELETAL PAIN [None]
